FAERS Safety Report 9447832 (Version 2)
Quarter: 2014Q2

REPORT INFORMATION
  Report Type: Spontaneous
  Country: BR (occurrence: BR)
  Receive Date: 20130808
  Receipt Date: 20140403
  Transmission Date: 20141212
  Serious: Yes (Hospitalization, Other)
  Sender: FDA-Public Use
  Company Number: BR-ASTRAZENECA-2013SE60426

PATIENT
  Age: 79 Year
  Sex: Male

DRUGS (6)
  1. CRESTOR [Suspect]
     Indication: BLOOD CHOLESTEROL ABNORMAL
     Route: 048
  2. BRILINTA [Suspect]
     Route: 048
     Dates: start: 201304
  3. ASPIRINA PREVENT [Suspect]
     Indication: ANTICOAGULANT THERAPY
     Route: 065
  4. ASPIRINA PREVENT [Suspect]
     Indication: ANTICOAGULANT THERAPY
     Route: 065
  5. MONOCORDIL [Concomitant]
     Indication: BLOOD CHOLESTEROL ABNORMAL
     Dosage: BID
  6. ENALAPRIL [Concomitant]
     Indication: BLOOD PRESSURE ABNORMAL

REACTIONS (4)
  - Infarction [Unknown]
  - Myocardial infarction [Unknown]
  - Coronary artery occlusion [Unknown]
  - Skin disorder [Unknown]
